FAERS Safety Report 20723562 (Version 3)
Quarter: 2022Q2

REPORT INFORMATION
  Report Type: Spontaneous
  Country: DE (occurrence: None)
  Receive Date: 20220419
  Receipt Date: 20220422
  Transmission Date: 20220721
  Serious: Yes (Other)
  Sender: FDA-Public Use
  Company Number: 2022A145559

PATIENT
  Age: 67 Year
  Sex: Female
  Weight: 59 kg

DRUGS (2)
  1. OMEPRAZOLE [Suspect]
     Active Substance: OMEPRAZOLE
     Indication: Helicobacter infection
     Dosage: 2 X DAILY 1 CAPSULE
     Route: 048
     Dates: start: 20220301, end: 20220311
  2. PYLERA [Suspect]
     Active Substance: BISMUTH SUBCITRATE POTASSIUM\METRONIDAZOLE\TETRACYCLINE HYDROCHLORIDE
     Indication: Helicobacter infection
     Dosage: 4 X DAILY 3 CAPSULES (ABOUT EVERY 6 HOURS),
     Route: 048
     Dates: start: 20220301, end: 20220311

REACTIONS (1)
  - Clostridial infection [Recovering/Resolving]

NARRATIVE: CASE EVENT DATE: 20220319
